FAERS Safety Report 13655375 (Version 1)
Quarter: 2017Q2

REPORT INFORMATION
  Report Type: Spontaneous
  Country: QA (occurrence: QA)
  Receive Date: 20170615
  Receipt Date: 20170615
  Transmission Date: 20170830
  Serious: Yes (Other)
  Sender: FDA-Public Use
  Company Number: QA-ACCORD-052579

PATIENT

DRUGS (1)
  1. TRAMADOL/TRAMADOL HYDROCHLORIDE [Suspect]
     Active Substance: TRAMADOL HYDROCHLORIDE
     Dosage: DOSE ESCALATION

REACTIONS (6)
  - Speech disorder [Recovered/Resolved]
  - Tachyphrenia [Recovered/Resolved]
  - Intentional product misuse [Recovered/Resolved]
  - Insomnia [Recovered/Resolved]
  - Psychotic disorder [Recovered/Resolved]
  - Mania [Recovered/Resolved]
